FAERS Safety Report 5867591-5 (Version None)
Quarter: 2008Q3

REPORT INFORMATION
  Report Type: 
  Country: None (occurrence: None)
  Receive Date: 20080902
  Receipt Date: 20071203
  Transmission Date: 20090109
  Serious: No
  Sender: FDA-Public Use
  Company Number: US-ABBOTT-07P-163-0427412-00

PATIENT
  Sex: Male
  Weight: 111.7 kg

DRUGS (21)
  1. DEPAKOTE ER [Suspect]
     Indication: SCHIZOAFFECTIVE DISORDER
     Route: 048
  2. DEPAKOTE ER [Suspect]
     Route: 048
     Dates: start: 20071204
  3. CHLORPROMAZINE HCL [Concomitant]
     Indication: SCHIZOAFFECTIVE DISORDER
     Route: 048
     Dates: start: 20070901
  4. CLONEZAPAM [Concomitant]
     Indication: SCHIZOAFFECTIVE DISORDER
     Route: 048
     Dates: start: 20071001
  5. ASPIRIN [Concomitant]
     Indication: DRUG USE FOR UNKNOWN INDICATION
     Route: 048
  6. ACETAMINOPHEN [Concomitant]
     Indication: PAIN
     Route: 048
  7. CITRATE [Concomitant]
     Indication: CONSTIPATION
     Route: 048
  8. MAGNESIUM HYDROXIDE TAB [Concomitant]
     Indication: CONSTIPATION
     Route: 048
  9. CAPTOPRIL [Concomitant]
     Indication: HYPERTENSION
     Route: 048
  10. FINESTIDE [Concomitant]
     Indication: DRUG USE FOR UNKNOWN INDICATION
     Route: 048
  11. LONG ACTING INSULIN [Concomitant]
     Indication: DIABETES MELLITUS
     Route: 058
  12. ISOPHANE INSULIN [Concomitant]
     Indication: DIABETES MELLITUS
     Route: 058
  13. REGULAR INSULIN [Concomitant]
     Indication: DIABETES MELLITUS
     Route: 058
  14. METFORMIN HCL [Concomitant]
     Indication: DIABETES MELLITUS
     Route: 048
  15. LANSOPRAZOLE [Concomitant]
     Indication: GASTROOESOPHAGEAL REFLUX DISEASE
     Route: 048
  16. TERAZOSIN HCL [Concomitant]
     Indication: HYPERTENSION
     Route: 048
  17. FUROSEMIDE [Concomitant]
     Indication: HYPERTENSION
     Route: 048
  18. SIMVASTATIN [Concomitant]
     Indication: BLOOD CHOLESTEROL INCREASED
     Route: 048
  19. BENZTROPINE MESYLATE [Concomitant]
     Indication: PROPHYLAXIS
     Route: 048
  20. BENZTROPINE MESYLATE [Concomitant]
     Indication: ADVERSE DRUG REACTION
  21. BENZTROPINE MESYLATE [Concomitant]
     Indication: MUSCULOSKELETAL STIFFNESS

REACTIONS (1)
  - SOMNOLENCE [None]
